FAERS Safety Report 19849652 (Version 2)
Quarter: 2021Q4

REPORT INFORMATION
  Report Type: Spontaneous
  Country: US (occurrence: None)
  Receive Date: 20210918
  Receipt Date: 20211123
  Transmission Date: 20220303
  Serious: No
  Sender: FDA-Public Use
  Company Number: 2021A725838

PATIENT
  Sex: Male
  Weight: 88 kg

DRUGS (1)
  1. BYDUREON BCISE [Suspect]
     Active Substance: EXENATIDE
     Indication: Lactic acidosis
     Route: 058
     Dates: start: 202103

REACTIONS (3)
  - Injection site haemorrhage [Unknown]
  - Injection site nodule [Unknown]
  - Device leakage [Unknown]

NARRATIVE: CASE EVENT DATE: 20210816
